FAERS Safety Report 7731368-6 (Version None)
Quarter: 2011Q3

REPORT INFORMATION
  Report Type: 
  Country: None (occurrence: None)
  Receive Date: 20110906
  Receipt Date: 20110826
  Transmission Date: 20111222
  Serious: Yes (Other)
  Sender: FDA-Public Use
  Company Number: CN-ASTRAZENECA-2011SE51234

PATIENT
  Age: 30 Year
  Sex: Female

DRUGS (2)
  1. ROPIVACAINE HYDROCHLORIDE [Suspect]
     Indication: ANAESTHESIA
     Route: 008
  2. LIDOCAINE [Concomitant]
     Route: 008

REACTIONS (3)
  - POISONING [None]
  - LOSS OF CONSCIOUSNESS [None]
  - HYPOTENSION [None]
